FAERS Safety Report 12578796 (Version 1)
Quarter: 2016Q3

REPORT INFORMATION
  Report Type: Spontaneous
  Country: US (occurrence: US)
  Receive Date: 20160721
  Receipt Date: 20160721
  Transmission Date: 20161109
  Serious: Yes (Hospitalization)
  Sender: FDA-Public Use
  Company Number: US-STRIDES ARCOLAB LIMITED-2016SP000775

PATIENT

DRUGS (3)
  1. VALGANCICLOVIR. [Concomitant]
     Active Substance: VALGANCICLOVIR
     Indication: IMMUNOSUPPRESSION
     Dosage: UNK
  2. TACROLIMUS. [Concomitant]
     Active Substance: TACROLIMUS
     Indication: IMMUNOSUPPRESSION
     Dosage: UNK
  3. MYCOPHENOLATE MOFETIL. [Suspect]
     Active Substance: MYCOPHENOLATE MOFETIL
     Indication: IMMUNOSUPPRESSION
     Dosage: 750 MG, EVERY 12 HRS

REACTIONS (11)
  - Abdominal pain [Unknown]
  - Lip dry [Unknown]
  - Weight decreased [Unknown]
  - Skin turgor decreased [Unknown]
  - Blood creatinine increased [Unknown]
  - Enterocolitis [Unknown]
  - Diarrhoea [Unknown]
  - Malaise [Unknown]
  - Pallor [Unknown]
  - Gastrointestinal sounds abnormal [Unknown]
  - Blood urea increased [Unknown]
